FAERS Safety Report 24863664 (Version 1)
Quarter: 2025Q1

REPORT INFORMATION
  Report Type: Spontaneous
  Country: US (occurrence: US)
  Receive Date: 20250120
  Receipt Date: 20250120
  Transmission Date: 20250408
  Serious: No
  Sender: Phathom Pharmaceuticals
  Company Number: US-PHATHOM PHARMACEUTICALS INC.-2024PHT01344

PATIENT
  Age: 62 Year
  Sex: Female

DRUGS (5)
  1. VOQUEZNA [Suspect]
     Active Substance: VONOPRAZAN FUMARATE
     Indication: Dyspepsia
     Dosage: 20 MG, 1X/DAY
     Route: 048
     Dates: start: 20240329, end: 2024
  2. LEVOTHYROXINE [Concomitant]
     Active Substance: LEVOTHYROXINE
  3. SOMA [Concomitant]
     Active Substance: CARISOPRODOL
  4. AMBIEN [Concomitant]
     Active Substance: ZOLPIDEM TARTRATE
  5. KLONOPIN [Concomitant]
     Active Substance: CLONAZEPAM

REACTIONS (2)
  - Oesophageal disorder [Unknown]
  - Nausea [Unknown]

NARRATIVE: CASE EVENT DATE: 20240101
